FAERS Safety Report 11596298 (Version 2)
Quarter: 2015Q4

REPORT INFORMATION
  Report Type: Spontaneous
  Country: CO (occurrence: CO)
  Receive Date: 20151006
  Receipt Date: 20151020
  Transmission Date: 20160304
  Serious: No
  Sender: FDA-Public Use
  Company Number: CO-BAYER-2015-394278

PATIENT
  Age: 22 Year
  Sex: Female

DRUGS (5)
  1. ADEMPAS [Suspect]
     Active Substance: RIOCIGUAT
     Indication: HEART DISEASE CONGENITAL
     Dosage: 1 MG, BID
     Route: 048
     Dates: start: 201503
  2. ENALAPRIL [Concomitant]
     Active Substance: ENALAPRIL
  3. SPIRONOLACTONE. [Concomitant]
     Active Substance: SPIRONOLACTONE
     Dosage: 1 DF, QD
  4. ADEMPAS [Suspect]
     Active Substance: RIOCIGUAT
     Indication: HEART DISEASE CONGENITAL
     Dosage: 2 MG, BID
  5. ADEMPAS [Suspect]
     Active Substance: RIOCIGUAT
     Indication: HEART DISEASE CONGENITAL
     Dosage: 2 MG, TID

REACTIONS (2)
  - Off label use [Not Recovered/Not Resolved]
  - Diarrhoea [None]

NARRATIVE: CASE EVENT DATE: 201503
